FAERS Safety Report 12827675 (Version 3)
Quarter: 2016Q4

REPORT INFORMATION
  Report Type: Report from Study
  Country: DE (occurrence: DE)
  Receive Date: 20161007
  Receipt Date: 20161213
  Transmission Date: 20170207
  Serious: Yes (Death, Life-Threatening, Hospitalization, Other)
  Sender: FDA-Public Use
  Company Number: DE-TEVA-698723ROM

PATIENT
  Age: 63 Year
  Sex: Female
  Weight: 110 kg

DRUGS (3)
  1. FLUDARABINE [Suspect]
     Active Substance: FLUDARABINE PHOSPHATE
     Indication: BONE MARROW CONDITIONING REGIMEN
     Dosage: 60 MILLIGRAM DAILY;
     Route: 042
     Dates: start: 20160818, end: 20160822
  2. ATG [Suspect]
     Active Substance: LAPINE T-LYMPHOCYTE IMMUNE GLOBULIN
     Indication: BONE MARROW CONDITIONING REGIMEN
  3. TREOSULFAN MEDAC [Suspect]
     Active Substance: TREOSULFAN
     Indication: BONE MARROW CONDITIONING REGIMEN
     Dosage: 20.7 GRAM DAILY;
     Route: 042
     Dates: start: 20160820, end: 20160822

REACTIONS (4)
  - Ileus [Not Recovered/Not Resolved]
  - Sepsis [Not Recovered/Not Resolved]
  - Haemorrhage intracranial [Fatal]
  - Encephalitis [Not Recovered/Not Resolved]

NARRATIVE: CASE EVENT DATE: 20160905
